FAERS Safety Report 12954776 (Version 1)
Quarter: 2016Q4

REPORT INFORMATION
  Report Type: Spontaneous
  Country: US (occurrence: US)
  Receive Date: 20161117
  Receipt Date: 20161117
  Transmission Date: 20170207
  Serious: No
  Sender: FDA-Public Use
  Company Number: None

PATIENT
  Age: 10 Year
  Sex: Male
  Weight: 43.65 kg

DRUGS (1)
  1. LEXAPRO [Suspect]
     Active Substance: ESCITALOPRAM OXALATE
     Dosage: 5 MG AT BEDTIME ORAL
     Route: 048
     Dates: start: 20160930, end: 20161003

REACTIONS (1)
  - Agitation [None]

NARRATIVE: CASE EVENT DATE: 20161004
